APPROVED DRUG PRODUCT: ZANTAC 150
Active Ingredient: RANITIDINE HYDROCHLORIDE
Strength: EQ 150MG BASE
Dosage Form/Route: TABLET, EFFERVESCENT;ORAL
Application: N020251 | Product #001
Applicant: GLAXO GROUP LTD ENGLAND DBA GLAXOSMITHKLINE
Approved: Mar 31, 1994 | RLD: No | RS: No | Type: DISCN